FAERS Safety Report 12647470 (Version 1)
Quarter: 2016Q3

REPORT INFORMATION
  Report Type: Spontaneous
  Country: US (occurrence: None)
  Receive Date: 20160811
  Receipt Date: 20160811
  Transmission Date: 20161109
  Serious: Yes (Hospitalization)
  Sender: FDA-Public Use
  Company Number: None

PATIENT
  Age: 58 Year
  Sex: Female
  Weight: 59.5 kg

DRUGS (2)
  1. DOXORUBICIN HYDROCHLORIDE. [Concomitant]
     Active Substance: DOXORUBICIN HYDROCHLORIDE
     Dates: end: 20160729
  2. CYCLOPHOSPHAMIDE. [Suspect]
     Active Substance: CYCLOPHOSPHAMIDE
     Dates: end: 20160729

REACTIONS (6)
  - Clostridium test positive [None]
  - Pyrexia [None]
  - Diarrhoea [None]
  - Abdominal pain [None]
  - Febrile neutropenia [None]
  - Hyponatraemia [None]

NARRATIVE: CASE EVENT DATE: 20160806
